FAERS Safety Report 14669502 (Version 2)
Quarter: 2018Q1

REPORT INFORMATION
  Report Type: Spontaneous
  Country: US (occurrence: US)
  Receive Date: 20180322
  Receipt Date: 20180326
  Transmission Date: 20180509
  Serious: Yes (Other)
  Sender: FDA-Public Use
  Company Number: US-PFIZER INC-2018119457

PATIENT
  Sex: Female
  Weight: 76.2 kg

DRUGS (2)
  1. VICODIN [Suspect]
     Active Substance: ACETAMINOPHEN\HYDROCODONE BITARTRATE
     Indication: PAIN
     Dosage: UNK
     Dates: start: 201408, end: 2016
  2. MORPHINE SULFATE. [Suspect]
     Active Substance: MORPHINE SULFATE
     Indication: PAIN
     Dosage: UNK
     Dates: start: 201408, end: 2016

REACTIONS (4)
  - Drug dependence [Unknown]
  - Pain [Unknown]
  - Mental disorder [Unknown]
  - Condition aggravated [Unknown]
